FAERS Safety Report 6546139-6 (Version None)
Quarter: 2010Q1

REPORT INFORMATION
  Report Type: 
  Country: None (occurrence: None)
  Receive Date: 20100122
  Receipt Date: 20100114
  Transmission Date: 20100710
  Serious: Yes (Hospitalization)
  Sender: FDA-Public Use
  Company Number: US-BIOGENIDEC-2010BI002035

PATIENT
  Age: 1 Day
  Weight: 2 kg

DRUGS (2)
  1. AVONEX [Suspect]
     Indication: DRUG EXPOSURE DURING PREGNANCY
     Route: 030
     Dates: start: 20041127, end: 20051201
  2. AVONEX [Suspect]
     Route: 064
     Dates: start: 20061002, end: 20081217

REACTIONS (1)
  - SMALL FOR DATES BABY [None]
